FAERS Safety Report 8969022 (Version 1)
Quarter: 2012Q4

REPORT INFORMATION
  Report Type: Spontaneous
  Country: US (occurrence: None)
  Receive Date: 20121214
  Receipt Date: 20121214
  Transmission Date: 20130627
  Serious: Yes (Hospitalization, Other)
  Sender: FDA-Public Use
  Company Number: None

PATIENT
  Age: 20 Year
  Sex: Female
  Weight: 68.04 kg

DRUGS (1)
  1. MIRENA [Suspect]
     Indication: BIRTH CONTROL
     Dates: start: 20120322, end: 20121207

REACTIONS (12)
  - Muscle spasms [None]
  - Chest pain [None]
  - Pruritus [None]
  - Headache [None]
  - No therapeutic response [None]
  - Pelvic inflammatory disease [None]
  - Paraesthesia [None]
  - Hypoaesthesia [None]
  - Insomnia [None]
  - Abdominal pain upper [None]
  - Pain [None]
  - Hypophagia [None]
